FAERS Safety Report 5501942-6 (Version None)
Quarter: 2007Q4

REPORT INFORMATION
  Report Type: 
  Country: None (occurrence: None)
  Receive Date: 20071030
  Receipt Date: 20071018
  Transmission Date: 20080405
  Serious: Yes (Life-Threatening, Hospitalization)
  Sender: FDA-Public Use
  Company Number: FR-WYE-H00728207

PATIENT
  Age: 74 Year
  Sex: Female

DRUGS (7)
  1. CORDARONE [Suspect]
     Dosage: 1200 MG ONCE
     Route: 048
     Dates: start: 20070623, end: 20070623
  2. CORDARONE [Suspect]
     Route: 048
     Dates: start: 20070628
  3. TAHOR [Concomitant]
     Indication: DYSLIPIDAEMIA
     Dosage: UNSPECIFIED
     Route: 048
  4. LEVOTHYROXINE SODIUM [Concomitant]
     Indication: HYPOTHYROIDISM
     Dosage: UNSPECIFIED
     Route: 048
  5. SECTRAL [Suspect]
     Dosage: 200 MG
     Route: 048
     Dates: end: 20070326
  6. SECTRAL [Suspect]
     Dosage: 200 MG
     Route: 048
     Dates: start: 20070622
  7. KARDEGIC [Concomitant]
     Dosage: UNSPECIFIED
     Route: 048

REACTIONS (1)
  - CARDIOGENIC SHOCK [None]
